FAERS Safety Report 25598093 (Version 2)
Quarter: 2025Q3

REPORT INFORMATION
  Report Type: Spontaneous
  Country: US (occurrence: US)
  Receive Date: 20250723
  Receipt Date: 20250728
  Transmission Date: 20251021
  Serious: Yes (Other)
  Sender: PFIZER
  Company Number: US-PFIZER INC-202400254070

PATIENT
  Age: 65 Year
  Sex: Female

DRUGS (5)
  1. VELSIPITY [Suspect]
     Active Substance: ETRASIMOD ARGININE
     Indication: Colitis
     Route: 048
     Dates: start: 2024
  2. VELSIPITY [Suspect]
     Active Substance: ETRASIMOD ARGININE
     Indication: Colitis ulcerative
  3. VELSIPITY [Suspect]
     Active Substance: ETRASIMOD ARGININE
     Indication: Colon cancer
  4. VELSIPITY [Suspect]
     Active Substance: ETRASIMOD ARGININE
     Indication: Diarrhoea
  5. ATORVASTATIN [Concomitant]
     Active Substance: ATORVASTATIN
     Dates: start: 20240913

REACTIONS (2)
  - Sacroiliac fusion [Unknown]
  - Impaired healing [Unknown]

NARRATIVE: CASE EVENT DATE: 20250601
